FAERS Safety Report 5949475-7 (Version None)
Quarter: 2008Q4

REPORT INFORMATION
  Report Type: 
  Country: None (occurrence: None)
  Receive Date: 20081112
  Receipt Date: 20081104
  Transmission Date: 20090506
  Serious: Yes (Other)
  Sender: FDA-Public Use
  Company Number: PHBS2008FR06223

PATIENT
  Sex: Male

DRUGS (1)
  1. HYDROCHLOROTHIAZIDE [Suspect]
     Dosage: 25 MG/DAY

REACTIONS (2)
  - HYPOVOLAEMIA [None]
  - MUSCLE SPASMS [None]
